FAERS Safety Report 20196943 (Version 3)
Quarter: 2022Q4

REPORT INFORMATION
  Report Type: Other
  Country: AU (occurrence: AU)
  Receive Date: 20211217
  Receipt Date: 20221013
  Transmission Date: 20230113
  Serious: Yes (Other)
  Sender: FDA-Public Use
  Company Number: AU-TOLMAR, INC.-21AU030818

PATIENT
  Sex: Male

DRUGS (2)
  1. ELIGARD [Suspect]
     Active Substance: LEUPROLIDE ACETATE
     Indication: Prostate cancer
     Dosage: 45 MILLIGRAM, Q 6 MONTH
  2. ELIGARD [Suspect]
     Active Substance: LEUPROLIDE ACETATE
     Dosage: 45 MILLIGRAM, Q 6 MONTH

REACTIONS (8)
  - Rectal haemorrhage [Unknown]
  - Bedridden [Unknown]
  - General physical health deterioration [Unknown]
  - Prostatic specific antigen increased [Unknown]
  - Renal pain [Unknown]
  - Abdominal pain lower [Unknown]
  - Pain [Unknown]
  - Fatigue [Not Recovered/Not Resolved]
